FAERS Safety Report 7535767-7 (Version None)
Quarter: 2011Q2

REPORT INFORMATION
  Report Type: 
  Country: None (occurrence: None)
  Receive Date: 20110609
  Receipt Date: 20110407
  Transmission Date: 20111010
  Serious: Yes (Hospitalization)
  Sender: FDA-Public Use
  Company Number: US-KINGPHARMUSA00001-K201100425

PATIENT
  Age: 41 Year
  Sex: Female
  Weight: 99.773 kg

DRUGS (6)
  1. EMBEDA [Suspect]
     Indication: FIBROMYALGIA
     Dosage: UNK
     Route: 048
     Dates: end: 20110301
  2. EMBEDA [Suspect]
     Indication: BACK PAIN
  3. NALTREXONE HYDROCHLORIDE [Suspect]
     Indication: BACK PAIN
  4. MORPHINE SULFATE [Suspect]
     Indication: BACK PAIN
  5. NALTREXONE HYDROCHLORIDE [Suspect]
     Indication: FIBROMYALGIA
     Dosage: UNK
     Dates: start: 20110322
  6. MORPHINE SULFATE [Suspect]
     Indication: FIBROMYALGIA
     Dosage: UNK
     Dates: start: 20110322

REACTIONS (1)
  - DRUG WITHDRAWAL SYNDROME [None]
